FAERS Safety Report 21120280 (Version 1)
Quarter: 2022Q3

REPORT INFORMATION
  Report Type: Spontaneous
  Country: US (occurrence: None)
  Receive Date: 20220722
  Receipt Date: 20220722
  Transmission Date: 20221027
  Serious: Yes (Other)
  Sender: FDA-Public Use
  Company Number: None

PATIENT
  Age: 69 Year
  Sex: Female
  Weight: 78.75 kg

DRUGS (14)
  1. PAXLOVID [Suspect]
     Active Substance: NIRMATRELVIR\RITONAVIR
     Indication: COVID-19
     Dosage: OTHER STRENGTH : DOSE PACK;?FREQUENCY : TWICE A DAY;?
     Route: 048
     Dates: start: 20220719, end: 20220720
  2. BUDESONIDE [Concomitant]
     Active Substance: BUDESONIDE
  3. CLONAZEPAM [Concomitant]
     Active Substance: CLONAZEPAM
  4. fluexione [Concomitant]
  5. LAMOTRIGINE [Concomitant]
     Active Substance: LAMOTRIGINE
  6. RAMIPRIL [Concomitant]
     Active Substance: RAMIPRIL
  7. RISEDRONATE SODIUM [Concomitant]
  8. ROSUVASTATIN [Concomitant]
     Active Substance: ROSUVASTATIN
  9. SPIRONOLACTONE [Concomitant]
     Active Substance: SPIRONOLACTONE
  10. VSL Probiotic [Concomitant]
  11. ARDS 2 [Concomitant]
  12. CHOLECALCIFEROL [Concomitant]
     Active Substance: CHOLECALCIFEROL
  13. B-12 [Concomitant]
  14. ASPIRIN [Concomitant]
     Active Substance: ASPIRIN

REACTIONS (2)
  - Blood pressure increased [None]
  - Headache [None]

NARRATIVE: CASE EVENT DATE: 20220720
